FAERS Safety Report 4704465-7 (Version None)
Quarter: 2005Q2

REPORT INFORMATION
  Report Type: 
  Country: None (occurrence: None)
  Receive Date: 20050628
  Receipt Date: 20050614
  Transmission Date: 20051028
  Serious: Yes (Life-Threatening, Hospitalization)
  Sender: FDA-Public Use
  Company Number: EWC050644352

PATIENT
  Age: 63 Year
  Sex: Male
  Weight: 62 kg

DRUGS (4)
  1. ALIMTA [Suspect]
     Indication: MESOTHELIOMA
     Dosage: 850 MG/ 1 OTHER
     Route: 050
     Dates: start: 20050317
  2. FOLIC ACID [Concomitant]
  3. MEDROL [Concomitant]
  4. VITAMIN B-12 [Concomitant]

REACTIONS (2)
  - COLITIS [None]
  - INTRA-ABDOMINAL HAEMORRHAGE [None]
